FAERS Safety Report 21119399 (Version 1)
Quarter: 2022Q3

REPORT INFORMATION
  Report Type: Spontaneous
  Country: ES (occurrence: ES)
  Receive Date: 20220722
  Receipt Date: 20220722
  Transmission Date: 20221027
  Serious: Yes (Hospitalization, Other)
  Sender: FDA-Public Use
  Company Number: ES-MLMSERVICE-2022061036094491

PATIENT
  Age: 74 Year
  Sex: Female

DRUGS (7)
  1. SERTRALINE [Interacting]
     Active Substance: SERTRALINE HYDROCHLORIDE
     Indication: Depression
     Dates: start: 20210215, end: 20210301
  2. TAPENTADOL [Interacting]
     Active Substance: TAPENTADOL
     Indication: Sciatica
     Dosage: RETARD, 50 MG/12 HOUR (22-DEC-2020)
     Dates: start: 20210216, end: 202103
  3. FENTANYL [Interacting]
     Active Substance: FENTANYL
     Indication: Sciatica
     Dosage: DOSE: 2 DOSAGE FORM, 2 DAILY DOSES OF TRANSMUCOSAL FENTANYL 200 MCG
     Dates: start: 20210216
  4. GABAPENTIN [Concomitant]
     Active Substance: GABAPENTIN
     Indication: Sciatica
     Dosage: 300 MILLIGRAM, 1/DAY
     Dates: start: 20210216
  5. OXYCODONE HYDROCHLORIDE [Concomitant]
     Active Substance: OXYCODONE HYDROCHLORIDE
     Indication: Sciatica
  6. OCTREOTIDE [Concomitant]
     Active Substance: OCTREOTIDE
     Indication: Carcinoid syndrome
     Route: 065
  7. TAPENTADOL [Interacting]
     Active Substance: TAPENTADOL
     Indication: Pelvic pain

REACTIONS (2)
  - Serotonin syndrome [Recovering/Resolving]
  - Drug interaction [Unknown]

NARRATIVE: CASE EVENT DATE: 20210101
